FAERS Safety Report 21689714 (Version 1)
Quarter: 2022Q4

REPORT INFORMATION
  Report Type: Spontaneous
  Country: US (occurrence: None)
  Receive Date: 20221205
  Receipt Date: 20221205
  Transmission Date: 20230113
  Serious: Yes (Hospitalization)
  Sender: FDA-Public Use
  Company Number: None

PATIENT
  Sex: Male

DRUGS (1)
  1. SPRAVATO [Suspect]
     Active Substance: ESKETAMINE
     Indication: Major depression
     Dosage: 40 MG TWICE WEEKLY INTRANASALY?
     Route: 045
     Dates: start: 202210

REACTIONS (2)
  - Suicidal ideation [None]
  - Product dose omission issue [None]
